FAERS Safety Report 4447593-6 (Version None)
Quarter: 2004Q3

REPORT INFORMATION
  Report Type: 
  Country: None (occurrence: None)
  Receive Date: 20040812
  Receipt Date: 20040630
  Transmission Date: 20050211
  Serious: No
  Sender: FDA-Public Use
  Company Number: USA040671446

PATIENT
  Age: 81 Year
  Sex: Male
  Weight: 91 kg

DRUGS (17)
  1. INSULIN [Suspect]
     Indication: DIABETES MELLITUS
  2. INSULIN [Suspect]
     Indication: DIABETES MELLITUS
  3. HUMULIN 70/30 [Suspect]
     Indication: DIABETES MELLITUS
  4. HUMALOG [Suspect]
     Indication: DIABETES MELLITUS
  5. CIALIS [Suspect]
     Indication: ERECTILE DYSFUNCTION
     Dosage: 20 MG
     Dates: start: 20040601
  6. LANTUS [Concomitant]
  7. PRANDIN [Concomitant]
  8. AVANDIA [Concomitant]
  9. ZOCOR [Concomitant]
  10. DIGOXIN [Concomitant]
  11. FOLIC ACID [Concomitant]
  12. TAMBOCOR [Concomitant]
  13. LISINOPRIL [Concomitant]
  14. MULTI-VITAMIN [Concomitant]
  15. VITAMIN E [Concomitant]
  16. VITAMIN B NOS [Concomitant]
  17. ACIPHEX [Concomitant]

REACTIONS (6)
  - ATRIAL FIBRILLATION [None]
  - BARRETT'S OESOPHAGUS [None]
  - ERECTILE DYSFUNCTION [None]
  - FATIGUE [None]
  - HYPOGLYCAEMIA [None]
  - MEMORY IMPAIRMENT [None]
